FAERS Safety Report 6716081 (Version 5)
Quarter: 2013Q2

REPORT INFORMATION
  Report Type: Report from Study
  Country: DE (occurrence: DE)
  Receive Date: 20080801
  Receipt Date: 20130611
  Transmission Date: 20140414
  Serious: Yes (Death, Life-Threatening, Hospitalization, Other)
  Sender: FDA-Public Use
  Company Number: DE-ROCHE-576707

PATIENT
  Age: 51 Year
  Sex: Male
  Weight: 78 kg

DRUGS (6)
  1. PEG-INTERFERON ALFA 2A [Suspect]
     Indication: CHRONIC HEPATITIS C
     Route: 058
     Dates: start: 20080508, end: 20080708
  2. RIBAVIRIN [Concomitant]
     Indication: CHRONIC HEPATITIS C
     Route: 048
     Dates: start: 20080508, end: 20080708
  3. TORASEMIDE [Concomitant]
     Indication: ASCITES
     Route: 048
  4. PROPRANOLOL [Concomitant]
     Indication: HEPATIC CIRRHOSIS
     Dosage: DRUG NAME REPORTED: PROPANOLOL
     Route: 048
  5. SPIRONOLACTONE [Concomitant]
     Indication: ASCITES
     Route: 048
  6. PANTOPRAZOLE [Concomitant]
     Indication: OESOPHAGITIS
     Route: 048

REACTIONS (10)
  - Multi-organ failure [Fatal]
  - Oesophageal varices haemorrhage [Fatal]
  - Sepsis [Fatal]
  - Pneumonia aspiration [Fatal]
  - Hepatic cirrhosis [Unknown]
  - Ammonia increased [Not Recovered/Not Resolved]
  - Anaemia [Recovering/Resolving]
  - Erosive duodenitis [Unknown]
  - Gastric ulcer [Unknown]
  - Arthralgia [Unknown]
